FAERS Safety Report 4908909-7 (Version None)
Quarter: 2006Q1

REPORT INFORMATION
  Report Type: 
  Country: None (occurrence: None)
  Receive Date: 20060210
  Receipt Date: 20060203
  Transmission Date: 20060701
  Serious: Yes (Death)
  Sender: FDA-Public Use
  Company Number: US-SANOFI-SYNTHELABO-A03200600683

PATIENT
  Sex: Female
  Weight: 40.82 kg

DRUGS (7)
  1. PLAVIX [Suspect]
     Indication: CEREBROVASCULAR ACCIDENT
     Route: 048
     Dates: start: 20010201
  2. LASIX [Concomitant]
     Route: 048
     Dates: start: 19980101
  3. PEPCID [Concomitant]
     Dosage: UNK
     Route: 048
     Dates: start: 19980101
  4. ATENOLOL [Concomitant]
     Route: 048
     Dates: start: 19980101
  5. LOVASTATIN [Concomitant]
     Route: 048
     Dates: start: 19980101
  6. HYDROCODONE BITARTRATE [Concomitant]
     Route: 048
     Dates: start: 19980101
  7. LISINOPRIL [Concomitant]
     Route: 048
     Dates: start: 19980101

REACTIONS (2)
  - DEATH [None]
  - LOSS OF CONSCIOUSNESS [None]
